FAERS Safety Report 4532222-3 (Version None)
Quarter: 2004Q4

REPORT INFORMATION
  Report Type: 
  Country: None (occurrence: None)
  Receive Date: 20041217
  Receipt Date: 20041210
  Transmission Date: 20050328
  Serious: Yes (Hospitalization)
  Sender: FDA-Public Use
  Company Number: 2004-12-0076

PATIENT
  Age: 20 Year
  Sex: Male

DRUGS (1)
  1. CLARINEX [Suspect]
     Indication: HYPERSENSITIVITY
     Dosage: ORAL
     Route: 048
     Dates: start: 20020101, end: 20041001

REACTIONS (2)
  - ARRHYTHMIA [None]
  - ELECTROCARDIOGRAM PQ INTERVAL PROLONGED [None]
